FAERS Safety Report 6287361-6 (Version None)
Quarter: 2009Q3

REPORT INFORMATION
  Report Type: 
  Country: None (occurrence: None)
  Receive Date: 20090728
  Receipt Date: 20090716
  Transmission Date: 20100115
  Serious: Yes (Hospitalization, Disabling, Other)
  Sender: FDA-Public Use
  Company Number: US-WYE-H10191209

PATIENT
  Sex: Male
  Weight: 81.72 kg

DRUGS (3)
  1. PRISTIQ [Suspect]
     Indication: POST-TRAUMATIC STRESS DISORDER
     Route: 048
     Dates: start: 20090201
  2. PRISTIQ [Suspect]
     Indication: DEPRESSION
  3. TYLENOL [Concomitant]
     Indication: HEADACHE
     Dosage: UNKNOWN
     Route: 048
     Dates: start: 20090101

REACTIONS (10)
  - ABNORMAL DREAMS [None]
  - CRYING [None]
  - EMOTIONAL DISORDER [None]
  - GUN SHOT WOUND [None]
  - INSOMNIA [None]
  - NIGHT SWEATS [None]
  - PARAPLEGIA [None]
  - RESTLESSNESS [None]
  - SUICIDE ATTEMPT [None]
  - TREMOR [None]
